FAERS Safety Report 6240588-1 (Version None)
Quarter: 2009Q2

REPORT INFORMATION
  Report Type: 
  Country: None (occurrence: None)
  Receive Date: 20090623
  Receipt Date: 20081118
  Transmission Date: 20091009
  Serious: No
  Sender: FDA-Public Use
  Company Number: US-ASTRAZENECA-2008UW23095

PATIENT
  Age: 9 Year
  Sex: Male
  Weight: 29.9 kg

DRUGS (4)
  1. PULMICORT FLEXHALER [Suspect]
     Indication: ASTHMA
     Route: 055
     Dates: start: 20050101
  2. BENADRYL [Concomitant]
     Dosage: PRN
  3. ALBUTEROL [Concomitant]
     Dosage: PRN
  4. PREDNISONE TAB [Concomitant]
     Indication: ILL-DEFINED DISORDER
     Dosage: PRN
     Route: 048

REACTIONS (1)
  - HALLUCINATION, AUDITORY [None]
